FAERS Safety Report 13113024 (Version 1)
Quarter: 2017Q1

REPORT INFORMATION
  Report Type: Spontaneous
  Country: AU (occurrence: AU)
  Receive Date: 20170113
  Receipt Date: 20170113
  Transmission Date: 20170428
  Serious: Yes (Death)
  Sender: FDA-Public Use
  Company Number: AU-IBIGEN-2016.01819

PATIENT
  Age: 45 Year
  Sex: Female

DRUGS (2)
  1. ICODEXTRIN [Concomitant]
     Active Substance: ICODEXTRIN
     Indication: PERITONEAL DIALYSIS
     Dosage: 2 DOSAGES 2.5 % DAILY
  2. PIPERACILLIN/TAZOBACTAM [Suspect]
     Active Substance: PIPERACILLIN SODIUM\TAZOBACTAM SODIUM
     Dosage: 2 DOSAGES 4.5 G DAILY

REACTIONS (1)
  - Toxic encephalopathy [Fatal]
